FAERS Safety Report 4458293-0 (Version None)
Quarter: 2004Q3

REPORT INFORMATION
  Report Type: 
  Country: None (occurrence: None)
  Receive Date: 20040917
  Receipt Date: 20040503
  Transmission Date: 20050211
  Serious: Yes (Hospitalization)
  Sender: FDA-Public Use
  Company Number: US-JNJFOC-20040101200

PATIENT
  Age: 50 Year
  Sex: Female
  Weight: 66.6788 kg

DRUGS (13)
  1. TOPAMAX [Suspect]
     Indication: BIPOLAR I DISORDER
     Dosage: 100 MG, 4 IN 1 DAY
     Dates: start: 20020101
  2. DITROPAN XL [Concomitant]
  3. ELMIRON [Concomitant]
  4. COUMADIN [Concomitant]
  5. ACIPHEX [Concomitant]
  6. PLAQUENIL [Concomitant]
  7. RESTASIS (CICLOSPORIN) [Concomitant]
  8. FLONASE [Concomitant]
  9. NIFEREX (POLYSACCHARIDE-IRON COMPLEX) [Concomitant]
  10. HYDROXYZINE [Concomitant]
  11. MAGNESIUM (MAGNESIUM) [Concomitant]
  12. PATANOL [Concomitant]
  13. FIBER TABLETS (POLYCARBOPHIL CALCIUM) [Concomitant]

REACTIONS (4)
  - DIZZINESS [None]
  - DYSPNOEA [None]
  - HYPERHIDROSIS [None]
  - METABOLIC ACIDOSIS [None]
